FAERS Safety Report 24195417 (Version 1)
Quarter: 2024Q3

REPORT INFORMATION
  Report Type: Spontaneous
  Country: CA (occurrence: CA)
  Receive Date: 20240809
  Receipt Date: 20240809
  Transmission Date: 20241016
  Serious: Yes (Other)
  Sender: TEVA
  Company Number: CA-TEVA-VS-3227833

PATIENT

DRUGS (2)
  1. CISPLATIN [Suspect]
     Active Substance: CISPLATIN
     Indication: Squamous cell carcinoma of head and neck
     Dosage: CISPLATIN INJECTION, BP SINGLE DOSE VIALS. 10MG/10ML, 50MG/50ML AND 100MG/100ML.PRESERVATIVE-FREE...
     Route: 065
  2. FLUOROURACIL [Suspect]
     Active Substance: FLUOROURACIL
     Indication: Squamous cell carcinoma of head and neck
     Route: 065

REACTIONS (3)
  - Febrile neutropenia [Unknown]
  - Fatigue [Unknown]
  - Nausea [Unknown]
